FAERS Safety Report 6030396-9 (Version None)
Quarter: 2009Q1

REPORT INFORMATION
  Report Type: 
  Country: None (occurrence: None)
  Receive Date: 20090106
  Receipt Date: 20090106
  Transmission Date: 20090719
  Serious: Yes (Hospitalization)
  Sender: FDA-Public Use
  Company Number: None

PATIENT
  Age: 67 Year
  Sex: Male
  Weight: 106 kg

DRUGS (1)
  1. NAFCILLIN SODIUM [Suspect]
     Indication: ENDOCARDITIS
     Dosage: 2 GRAMS EVERY 4 HOURS IV
     Route: 042
     Dates: start: 20080325, end: 20080404

REACTIONS (3)
  - BLOOD CREATININE INCREASED [None]
  - PLATELET COUNT DECREASED [None]
  - WHITE BLOOD CELL COUNT DECREASED [None]
